FAERS Safety Report 6493094-3 (Version None)
Quarter: 2009Q4

REPORT INFORMATION
  Report Type: 
  Country: None (occurrence: None)
  Receive Date: 20091214
  Receipt Date: 20091113
  Transmission Date: 20100525
  Serious: No
  Sender: FDA-Public Use
  Company Number: US-BAYER-200939516NA

PATIENT
  Age: 20 Year
  Sex: Female

DRUGS (3)
  1. MIRENA [Suspect]
     Indication: CONTRACEPTION
     Dosage: CONTINUOUS
     Route: 015
  2. MOTRIN [Concomitant]
     Indication: HEADACHE
  3. TYLENOL (CAPLET) [Concomitant]
     Indication: HEADACHE

REACTIONS (1)
  - ABDOMINAL PAIN LOWER [None]
